FAERS Safety Report 12937128 (Version 1)
Quarter: 2016Q4

REPORT INFORMATION
  Report Type: Spontaneous
  Country: US (occurrence: US)
  Receive Date: 20161114
  Receipt Date: 20161114
  Transmission Date: 20170207
  Serious: No
  Sender: FDA-Public Use
  Company Number: US-GALDERMA-US16002078

PATIENT
  Age: 67 Year
  Sex: Female

DRUGS (3)
  1. UNKNOWN INSULIN DELIVERED BY INSULIN PUMP [Concomitant]
  2. CAPEX [Suspect]
     Active Substance: FLUOCINOLONE ACETONIDE
     Indication: SEBORRHOEIC DERMATITIS
     Dosage: 0.01%
     Route: 061
  3. CAPEX [Suspect]
     Active Substance: FLUOCINOLONE ACETONIDE
     Dosage: 0.01%
     Route: 061
     Dates: start: 201603, end: 201603

REACTIONS (2)
  - Drug ineffective [Not Recovered/Not Resolved]
  - Poor quality drug administered [Recovered/Resolved]

NARRATIVE: CASE EVENT DATE: 201601
